FAERS Safety Report 4781805-4 (Version None)
Quarter: 2005Q3

REPORT INFORMATION
  Report Type: 
  Country: None (occurrence: None)
  Receive Date: 20050914
  Receipt Date: 20050416
  Transmission Date: 20060218
  Serious: Yes (Hospitalization)
  Sender: FDA-Public Use
  Company Number: 163-20785-05040377

PATIENT
  Age: 64 Year
  Sex: Female

DRUGS (15)
  1. THALOMID [Suspect]
     Indication: MULTIPLE MYELOMA
     Dosage: 200 MG, DAILY, ORAL
     Route: 048
     Dates: start: 20050322, end: 20050325
  2. BORTEZOMIB (BORTEZOMIB) [Suspect]
     Indication: MULTIPLE MYELOMA
     Dosage: INTRAVENOUS
     Route: 042
     Dates: start: 20050319, end: 20050319
  3. BORTEZOMIB (BORTEZOMIB) [Suspect]
     Indication: MULTIPLE MYELOMA
     Dosage: INTRAVENOUS
     Route: 042
     Dates: start: 20050322, end: 20050322
  4. BORTEZOMIB (BORTEZOMIB) [Suspect]
     Indication: MULTIPLE MYELOMA
     Dosage: INTRAVENOUS
     Route: 042
     Dates: start: 20050326, end: 20050326
  5. BORTEZOMIB (BORTEZOMIB) [Suspect]
     Indication: MULTIPLE MYELOMA
     Dosage: INTRAVENOUS
     Route: 042
     Dates: start: 20050330, end: 20050330
  6. DEXAMETHASONE [Suspect]
     Indication: MULTIPLE MYELOMA
     Dosage: 40 MG, DAILY, INTRAVENOUS
     Route: 042
     Dates: start: 20050322, end: 20050325
  7. CISPLATIN [Suspect]
     Indication: MULTIPLE MYELOMA
     Dosage: 15 MG, DAILY, INTRAVENOUS
     Route: 042
     Dates: start: 20050322, end: 20050325
  8. ADRIAMYCIN PFS [Suspect]
     Indication: MULTIPLE MYELOMA
     Dosage: 15 MG, DAILY, INTRAVENOUS
     Route: 042
     Dates: start: 20050322, end: 20050325
  9. CYCLOPHOSPHAMIDE [Suspect]
     Indication: MULTIPLE MYELOMA
     Dosage: 600 MG, DAILY, INTRAVENOUS
     Route: 042
     Dates: start: 20050322, end: 20050325
  10. ETOPOSIDE [Suspect]
     Indication: MULTIPLE MYELOMA
     Dosage: 60 MG, DAILY, INTRAVENOUS
     Route: 042
     Dates: start: 20050322, end: 20050325
  11. LEVAQUIN [Concomitant]
  12. ACYCLOVIR [Concomitant]
  13. DIFLUCAN [Concomitant]
  14. ZANTAC [Concomitant]
  15. PROCRIT [Concomitant]

REACTIONS (5)
  - ASTHENIA [None]
  - DIZZINESS [None]
  - LOBAR PNEUMONIA [None]
  - NEUTROPENIA [None]
  - SYNCOPE [None]
